FAERS Safety Report 7997221-8 (Version None)
Quarter: 2011Q4

REPORT INFORMATION
  Report Type: 
  Country: None (occurrence: None)
  Receive Date: 20111221
  Receipt Date: 20111215
  Transmission Date: 20120403
  Serious: Yes (Hospitalization)
  Sender: FDA-Public Use
  Company Number: FR-ABBOTT-11P-056-0728062-00

PATIENT
  Sex: Male

DRUGS (6)
  1. PLAVIX [Concomitant]
     Indication: ARTHRITIS
  2. CRESTOR [Concomitant]
     Indication: ARTHRITIS
  3. FONZYLANE [Concomitant]
     Indication: ARTHRITIS
     Dates: end: 20100101
  4. HUMIRA [Suspect]
     Indication: PSORIASIS
     Route: 058
     Dates: start: 20100415, end: 20110125
  5. NEBIVOLOL HCL [Concomitant]
     Indication: CARDIAC FAILURE
  6. HUMIRA [Concomitant]
     Route: 058
     Dates: start: 20080226

REACTIONS (2)
  - ILIAC ARTERY THROMBOSIS [None]
  - GRAFT THROMBOSIS [None]
